FAERS Safety Report 6878504-1 (Version None)
Quarter: 2010Q3

REPORT INFORMATION
  Report Type: 
  Country: None (occurrence: None)
  Receive Date: 20100728
  Receipt Date: 20100726
  Transmission Date: 20110219
  Serious: Yes (Disabling)
  Sender: FDA-Public Use
  Company Number: GB-TEVA-242559ISR

PATIENT
  Age: 82 Year
  Sex: Female
  Weight: 87 kg

DRUGS (1)
  1. FUROSEMIDE [Suspect]
     Dates: start: 20100614, end: 20100712

REACTIONS (1)
  - ARTHRALGIA [None]
